FAERS Safety Report 11247476 (Version 2)
Quarter: 2015Q3

REPORT INFORMATION
  Report Type: Spontaneous
  Country: US (occurrence: US)
  Receive Date: 20150708
  Receipt Date: 20150811
  Transmission Date: 20151125
  Serious: Yes (Hospitalization)
  Sender: FDA-Public Use
  Company Number: US-ACORDA-ACO_29379_2012

PATIENT
  Age: 66 Year
  Sex: Female
  Weight: 89.8 kg

DRUGS (4)
  1. AMPYRA [Suspect]
     Active Substance: DALFAMPRIDINE
     Dosage: 10 MG, QD
  2. AMPYRA [Suspect]
     Active Substance: DALFAMPRIDINE
     Indication: FALL
     Dosage: 10 MG, BID
     Route: 048
     Dates: start: 201111, end: 201201
  3. REBIF [Suspect]
     Active Substance: INTERFERON BETA-1A
     Indication: PRODUCT USED FOR UNKNOWN INDICATION
     Dosage: UNK, FULL DOSE
  4. REBIF [Suspect]
     Active Substance: INTERFERON BETA-1A
     Dosage: UNK, HALF DOSE

REACTIONS (10)
  - Fall [Not Recovered/Not Resolved]
  - Contusion [Not Recovered/Not Resolved]
  - Diarrhoea [Unknown]
  - Vomiting [Unknown]
  - Limb injury [Not Recovered/Not Resolved]
  - Inappropriate schedule of drug administration [Unknown]
  - Off label use [Unknown]
  - Fall [Unknown]
  - Malaise [Unknown]
  - Head injury [Not Recovered/Not Resolved]

NARRATIVE: CASE EVENT DATE: 201202
